FAERS Safety Report 5131710-9 (Version None)
Quarter: 2006Q4

REPORT INFORMATION
  Report Type: 
  Country: None (occurrence: None)
  Receive Date: 20061020
  Receipt Date: 20060919
  Transmission Date: 20070319
  Serious: Yes (Hospitalization)
  Sender: FDA-Public Use
  Company Number: CA-BOEHRINGER INGELHEIM PHARMACEUTICALS, INC.-2006-CN-00492CN

PATIENT
  Sex: Male

DRUGS (14)
  1. TIPRANAVIR + RITONAVIR CO-ADMIN [Suspect]
     Indication: HIV INFECTION
     Dosage: 1000MG TPV/DAY - 400MG RTV/DAY
     Route: 048
     Dates: start: 20051015
  2. NEUPOGEN [Concomitant]
     Indication: NEUTROPENIA
     Route: 058
     Dates: start: 20060127, end: 20060202
  3. CEFTAZIDINE [Concomitant]
     Indication: INFECTION
     Route: 042
     Dates: start: 20060101, end: 20060202
  4. ITRACONAZOLE [Concomitant]
     Route: 048
     Dates: start: 20050126
  5. TENOFOVIR [Concomitant]
     Indication: HIV INFECTION
     Route: 048
     Dates: start: 20060106
  6. D4T [Concomitant]
     Indication: HIV INFECTION
     Route: 048
     Dates: start: 20060106
  7. ACYCLOVIR [Concomitant]
     Route: 048
     Dates: start: 20051027
  8. ITRACONAZOLE [Concomitant]
     Route: 048
     Dates: start: 20050126
  9. GATAPENTIN [Concomitant]
     Route: 048
     Dates: start: 20060120
  10. PRED FORTE [Concomitant]
     Dosage: 4 DROPS IN LEFT EYE, 1% SOLUTION
     Dates: start: 20060120
  11. SEPTRA SS [Concomitant]
     Indication: ANTIFUNGAL PROPHYLAXIS
     Dosage: 80/400MG
     Route: 048
     Dates: start: 20040730
  12. ETHAMBUTOL HYDROCHLORIDE [Concomitant]
     Indication: MYCOBACTERIUM AVIUM COMPLEX INFECTION
     Route: 048
     Dates: start: 20051027
  13. CELEXA [Concomitant]
     Indication: DEPRESSION
     Route: 048
     Dates: start: 20060105
  14. AZITHROMYCIN [Concomitant]
     Indication: MYCOBACTERIUM AVIUM COMPLEX INFECTION
     Route: 048
     Dates: start: 20051216

REACTIONS (3)
  - CELLULITIS [None]
  - FEBRILE NEUTROPENIA [None]
  - SKIN ULCER [None]
